FAERS Safety Report 8257058-1 (Version None)
Quarter: 2012Q2

REPORT INFORMATION
  Report Type: 
  Country: None (occurrence: None)
  Receive Date: 20120403
  Receipt Date: 20120323
  Transmission Date: 20120825
  Serious: Yes (Other)
  Sender: FDA-Public Use
  Company Number: FR-GLAXOSMITHKLINE-B0790638A

PATIENT
  Sex: Female

DRUGS (10)
  1. URBANYL [Suspect]
     Indication: EPILEPSY
     Dosage: 10MG TWICE PER DAY
     Dates: start: 20020703
  2. DOMPERIDONE [Concomitant]
  3. LUTENYL [Concomitant]
  4. LANSOYL [Concomitant]
  5. TOPREC [Concomitant]
  6. LAMICTAL [Suspect]
     Indication: EPILEPSY
     Route: 048
     Dates: start: 20040801
  7. VIMPAT [Concomitant]
  8. TRILEPTAL [Concomitant]
  9. TEGRETOL [Suspect]
     Indication: EPILEPSY
     Route: 048
     Dates: start: 20010221
  10. ACETAMINOPHEN [Concomitant]

REACTIONS (3)
  - ALANINE AMINOTRANSFERASE INCREASED [None]
  - GAMMA-GLUTAMYLTRANSFERASE INCREASED [None]
  - CHRONIC HEPATITIS [None]
